FAERS Safety Report 4944679-4 (Version None)
Quarter: 2006Q1

REPORT INFORMATION
  Report Type: 
  Country: None (occurrence: None)
  Receive Date: 20060315
  Receipt Date: 20060228
  Transmission Date: 20060701
  Serious: Yes (Hospitalization)
  Sender: FDA-Public Use
  Company Number: HQWYE105002MAR06

PATIENT
  Sex: Female
  Weight: 62 kg

DRUGS (15)
  1. ENBREL [Suspect]
     Indication: RHEUMATOID ARTHRITIS
     Route: 058
     Dates: start: 20050818
  2. DECADRON SRC [Concomitant]
     Indication: RHEUMATOID ARTHRITIS
     Dosage: UNKNOWN
     Route: 042
  3. NORVASC [Concomitant]
     Dosage: UNKNOWN
     Route: 048
  4. ACTONEL [Concomitant]
     Dosage: UNKNOWN
     Route: 048
  5. ASPARTATE CALCIUM [Concomitant]
     Dosage: UNKNOWN
     Route: 048
  6. TOCOPHERYL NICOTINATE [Concomitant]
     Dosage: UNKNOWN
     Route: 048
  7. OPALMON [Concomitant]
     Dosage: UNKNOWN
     Route: 048
  8. UNSPECIFIED MEDICATION [Concomitant]
     Dosage: UNKNOWN
     Route: 048
  9. CANDESARTAN CILEXETIL [Concomitant]
     Dosage: UNKNOWN
     Route: 048
  10. LASIX [Concomitant]
     Dosage: UNKNOWN
     Route: 048
  11. LOXONIN [Concomitant]
     Indication: RHEUMATOID ARTHRITIS
     Dosage: UNKNOWN
     Route: 048
  12. SELBEX [Concomitant]
     Dosage: UNKNOWN
     Route: 048
  13. NIZATIDINE [Concomitant]
     Dosage: UNKNOWN
     Route: 048
  14. PREDONINE [Concomitant]
     Indication: RHEUMATOID ARTHRITIS
     Dosage: UNKNOWN
     Route: 048
  15. METHOTREXATE [Concomitant]
     Route: 048
     Dates: start: 20050622, end: 20060101

REACTIONS (2)
  - ASTHMA [None]
  - BRONCHITIS ACUTE [None]
